FAERS Safety Report 9506834 (Version 2)
Quarter: 2013Q4

REPORT INFORMATION
  Report Type: Spontaneous
  Country: US (occurrence: US)
  Receive Date: 20130909
  Receipt Date: 20131025
  Transmission Date: 20140711
  Serious: Yes (Hospitalization)
  Sender: FDA-Public Use
  Company Number: US-BIOGENIDEC-2013BI082891

PATIENT
  Age: 66 Year
  Sex: Female

DRUGS (2)
  1. TYSABRI [Suspect]
     Indication: MULTIPLE SCLEROSIS
     Route: 042
     Dates: start: 201306
  2. AMANTADINE [Concomitant]

REACTIONS (3)
  - Hallucination [Recovered/Resolved]
  - Metabolic disorder [Recovered/Resolved]
  - Urinary tract infection [Recovered/Resolved]
